FAERS Safety Report 11832467 (Version 1)
Quarter: 2015Q4

REPORT INFORMATION
  Report Type: Spontaneous
  Country: FR (occurrence: FR)
  Receive Date: 20151214
  Receipt Date: 20151214
  Transmission Date: 20160305
  Serious: Yes (Hospitalization)
  Sender: FDA-Public Use
  Company Number: FR-009507513-1512FRA006156

PATIENT
  Age: 87 Year
  Sex: Female

DRUGS (11)
  1. AERIUS [Suspect]
     Active Substance: DESLORATADINE
     Indication: RHINITIS
     Dosage: UNK
     Route: 048
     Dates: start: 20150602, end: 20150612
  2. LASILIX [Concomitant]
     Active Substance: FUROSEMIDE
     Dosage: 1/DAY, STRENGTH: 250 (UNITS NOT PROVIDED)
  3. CORTANCYL [Concomitant]
     Active Substance: PREDNISONE
     Dosage: 3 MG/DAY
  4. SINGULAIR [Suspect]
     Active Substance: MONTELUKAST SODIUM
     Indication: RHINITIS
     Dosage: UNK
     Route: 048
     Dates: start: 20150602, end: 20150612
  5. LEVOTHYROX [Concomitant]
     Active Substance: LEVOTHYROXINE
     Dosage: 1/DAY, STRENGTH: 120 (UNITS NOT PROVIDED)
  6. KARDEGIC [Concomitant]
     Active Substance: ASPIRIN LYSINE
     Dosage: 1/DAY, STRENGTH: 75 (UNITS NOT PROVIDED)
  7. CARDENSIEL [Concomitant]
     Active Substance: BISOPROLOL FUMARATE
     Dosage: 1/DAY, STRENGTH: 5 (UNITS NOT PROVIDED)
     Dates: start: 20150512
  8. INEXIUM (ESOMEPRAZOLE MAGNESIUM) [Concomitant]
     Active Substance: ESOMEPRAZOLE MAGNESIUM
     Dosage: 1/DAY, STRENGTH: 40 (UNITS NOT PROVIDED)
  9. TARDYFERON [Concomitant]
     Active Substance: FERROUS SULFATE\FOLIC ACID
     Dosage: 1/DAY
  10. CORDARONE [Suspect]
     Active Substance: AMIODARONE HYDROCHLORIDE
     Dosage: UNK
     Route: 048
     Dates: end: 20150512
  11. COUMADIN [Concomitant]
     Active Substance: WARFARIN SODIUM
     Dosage: 1/DAY

REACTIONS (1)
  - Henoch-Schonlein purpura [Recovering/Resolving]

NARRATIVE: CASE EVENT DATE: 201506
